FAERS Safety Report 5665360-2 (Version None)
Quarter: 2008Q1

REPORT INFORMATION
  Report Type: 
  Country: None (occurrence: None)
  Receive Date: 20080314
  Receipt Date: 20071204
  Transmission Date: 20080703
  Serious: No
  Sender: FDA-Public Use
  Company Number: US-ABBOTT-07P-163-0426859-00

PATIENT
  Sex: Male
  Weight: 81.72 kg

DRUGS (10)
  1. HUMIRA [Suspect]
     Indication: COLITIS ULCERATIVE
     Route: 058
     Dates: start: 20071105, end: 20071105
  2. HUMIRA [Suspect]
     Route: 058
     Dates: start: 20071119, end: 20071119
  3. HUMIRA [Suspect]
     Route: 058
     Dates: start: 20071203
  4. PREDNISONE TAB [Suspect]
     Indication: DRUG USE FOR UNKNOWN INDICATION
  5. BYETTA [Concomitant]
     Indication: TYPE 2 DIABETES MELLITUS
  6. GLUGOPHAGE [Concomitant]
     Indication: TYPE 2 DIABETES MELLITUS
  7. BLOOD PRESSURE MEDICATION [Concomitant]
     Indication: BLOOD PRESSURE INCREASED
  8. AZTHIOPRINE [Concomitant]
     Indication: DRUG USE FOR UNKNOWN INDICATION
  9. GLIBENCLAMIDE [Concomitant]
     Indication: DRUG USE FOR UNKNOWN INDICATION
  10. HYDROCHLOROTHIAZIDE [Concomitant]
     Indication: DRUG USE FOR UNKNOWN INDICATION

REACTIONS (6)
  - GINGIVAL RECESSION [None]
  - ORAL DISORDER [None]
  - RESORPTION BONE INCREASED [None]
  - TOOTH DISORDER [None]
  - TOOTH INFECTION [None]
  - TOOTHACHE [None]
